FAERS Safety Report 10034266 (Version 2)
Quarter: 2014Q2

REPORT INFORMATION
  Report Type: Report from Study
  Country: DE (occurrence: DE)
  Receive Date: 20140325
  Receipt Date: 20140519
  Transmission Date: 20141212
  Serious: Yes (Life-Threatening)
  Sender: FDA-Public Use
  Company Number: DE-ROCHE-1369512

PATIENT
  Age: 51 Year
  Sex: Male

DRUGS (4)
  1. RITUXIMAB [Suspect]
     Indication: RHEUMATOID ARTHRITIS
     Dosage: LAST DOCUMENTED ADMINISTRATION ON JAN/2014
     Route: 065
  2. LEFLUNOMID [Suspect]
     Indication: RHEUMATOID ARTHRITIS
     Route: 065
  3. ARCOXIA [Concomitant]
  4. PREDNISOLON [Concomitant]

REACTIONS (1)
  - Acute leukaemia [Unknown]
